FAERS Safety Report 9322856 (Version 1)
Quarter: 2013Q2

REPORT INFORMATION
  Report Type: Report from Study
  Country: DZ (occurrence: DZ)
  Receive Date: 20130601
  Receipt Date: 20130601
  Transmission Date: 20140414
  Serious: Yes (Other)
  Sender: FDA-Public Use
  Company Number: PHHY2013DZ054491

PATIENT
  Sex: 0

DRUGS (1)
  1. ICL670A [Suspect]
     Indication: IRON OVERLOAD
     Dosage: UNK UKN, UNK

REACTIONS (1)
  - Genital haemorrhage [Unknown]
